FAERS Safety Report 4666893-8 (Version None)
Quarter: 2005Q2

REPORT INFORMATION
  Report Type: 
  Country: None (occurrence: None)
  Receive Date: 20050518
  Receipt Date: 20040524
  Transmission Date: 20051028
  Serious: Yes (Other)
  Sender: FDA-Public Use
  Company Number: 2004215107US

PATIENT
  Age: 24 Year
  Sex: Female
  Weight: 90.7 kg

DRUGS (2)
  1. DEPO-PROVERA [Suspect]
     Dosage: 150 MG, FIRST INJECTION, INTRAMUSCULAR;  150 MG, LAST INJECTION , INTRAMUSCULAR
     Route: 030
     Dates: start: 19981201, end: 19981201
  2. DEPO-PROVERA [Suspect]
     Dosage: 150 MG, FIRST INJECTION, INTRAMUSCULAR;  150 MG, LAST INJECTION , INTRAMUSCULAR
     Route: 030
     Dates: start: 20040130, end: 20040130

REACTIONS (2)
  - ACNE [None]
  - WEIGHT INCREASED [None]
